FAERS Safety Report 4766817-9 (Version None)
Quarter: 2005Q3

REPORT INFORMATION
  Report Type: 
  Country: None (occurrence: None)
  Receive Date: 20050908
  Receipt Date: 20050823
  Transmission Date: 20060218
  Serious: Yes (Hospitalization, Other)
  Sender: FDA-Public Use
  Company Number: 2005BI015925

PATIENT
  Age: 64 Year
  Sex: Female
  Weight: 65.318 kg

DRUGS (6)
  1. AVONEX [Suspect]
     Indication: MULTIPLE SCLEROSIS
     Dosage: 30 UG; QW; IM
     Route: 030
     Dates: start: 19970101, end: 20030101
  2. AVONEX [Suspect]
     Indication: MULTIPLE SCLEROSIS
     Dosage: 30 UG; QW; IM
     Route: 030
     Dates: start: 20030101
  3. INSULIN [Concomitant]
  4. METOPROLOL [Concomitant]
  5. FELODIPINE [Concomitant]
  6. ASPIRIN [Concomitant]

REACTIONS (6)
  - DIALYSIS [None]
  - DISEASE RECURRENCE [None]
  - GALLBLADDER DISORDER [None]
  - MYOCARDIAL INFARCTION [None]
  - RENAL FAILURE [None]
  - UTERINE LEIOMYOMA [None]
